FAERS Safety Report 21587296 (Version 1)
Quarter: 2022Q4

REPORT INFORMATION
  Report Type: Report from Study
  Country: US (occurrence: US)
  Receive Date: 20221114
  Receipt Date: 20221114
  Transmission Date: 20230112
  Serious: Yes (Death, Other)
  Sender: FDA-Public Use
  Company Number: US-BRISTOL-MYERS SQUIBB COMPANY-2022-135320

PATIENT
  Age: 63 Year
  Sex: Male
  Weight: 84.8 kg

DRUGS (1)
  1. REVLIMID [Suspect]
     Active Substance: LENALIDOMIDE
     Indication: Plasma cell myeloma
     Dosage: 25 MG EVERY OTHER DAY
     Route: 048
     Dates: start: 202107

REACTIONS (2)
  - Death [Fatal]
  - Off label use [Unknown]
